FAERS Safety Report 21967632 (Version 1)
Quarter: 2023Q1

REPORT INFORMATION
  Report Type: Spontaneous
  Country: US (occurrence: None)
  Receive Date: 20230206
  Receipt Date: 20230206
  Transmission Date: 20230417
  Serious: Yes (unspecified)
  Sender: FDA-Public Use
  Company Number: None

PATIENT
  Age: 59 Year
  Sex: Male
  Weight: 86.2 kg

DRUGS (4)
  1. PACLITAXEL [Suspect]
     Active Substance: PACLITAXEL
     Indication: Lung carcinoma cell type unspecified stage 0
     Dosage: OTHER FREQUENCY : ONE TIME INFUSION;?
     Route: 041
     Dates: start: 20230131, end: 20230131
  2. Diphenhydramine 25 mg IVP [Concomitant]
     Dates: start: 20230131, end: 20230131
  3. Hydrocortisone 100 mg IVP [Concomitant]
     Dates: start: 20230131, end: 20230131
  4. EpiPen adult 0.3 mg [Concomitant]
     Dates: start: 20230131, end: 20230131

REACTIONS (4)
  - Infusion related reaction [None]
  - Feeling hot [None]
  - Flushing [None]
  - Pharyngitis [None]

NARRATIVE: CASE EVENT DATE: 20230202
